FAERS Safety Report 7833856-0 (Version None)
Quarter: 2011Q4

REPORT INFORMATION
  Report Type: 
  Country: None (occurrence: None)
  Receive Date: 20111024
  Receipt Date: 20111017
  Transmission Date: 20120403
  Serious: Yes (Life-Threatening)
  Sender: FDA-Public Use
  Company Number: IT-GLAXOSMITHKLINE-B0757371A

PATIENT
  Sex: Female

DRUGS (2)
  1. ZANTAC [Suspect]
     Indication: PREMEDICATION
     Dosage: 50MG PER DAY
     Route: 042
     Dates: start: 20110201, end: 20111011
  2. ATARAX [Concomitant]
     Indication: PREMEDICATION
     Dosage: 50MG PER DAY
     Route: 048
     Dates: start: 20111011, end: 20111011

REACTIONS (6)
  - ANAPHYLACTIC SHOCK [None]
  - MALAISE [None]
  - HYPOTENSION [None]
  - DYSPNOEA [None]
  - CHEST DISCOMFORT [None]
  - HYPOPERFUSION [None]
